FAERS Safety Report 4840523-4 (Version None)
Quarter: 2005Q4

REPORT INFORMATION
  Report Type: 
  Country: None (occurrence: None)
  Receive Date: 20051130
  Receipt Date: 20050915
  Transmission Date: 20060501
  Serious: No
  Sender: FDA-Public Use
  Company Number: US-BRISTOL-MYERS SQUIBB COMPANY-13112313

PATIENT
  Age: 45 Year
  Sex: Female
  Weight: 63 kg

DRUGS (2)
  1. ERBITUX [Suspect]
     Indication: COLON CANCER
     Dosage: INITIATED ON 01-JUL-2005.
     Route: 042
     Dates: start: 20050101, end: 20050101
  2. BENADRYL [Concomitant]
     Indication: PREMEDICATION
     Dates: start: 20050101, end: 20050101

REACTIONS (1)
  - SKIN IRRITATION [None]
